FAERS Safety Report 8108939-0 (Version None)
Quarter: 2012Q1

REPORT INFORMATION
  Report Type: 
  Country: None (occurrence: None)
  Receive Date: 20120202
  Receipt Date: 20120125
  Transmission Date: 20120608
  Serious: Yes (Other)
  Sender: FDA-Public Use
  Company Number: FR-GLAXOSMITHKLINE-B0778897A

PATIENT
  Sex: Female

DRUGS (1)
  1. NABUMETONE [Suspect]
     Indication: CERVICAL ROOT PAIN
     Dosage: 1G TWICE PER DAY
     Route: 048
     Dates: start: 20120116, end: 20120121

REACTIONS (1)
  - ANGIOEDEMA [None]
